FAERS Safety Report 10166876 (Version 3)
Quarter: 2014Q2

REPORT INFORMATION
  Report Type: Spontaneous
  Country: US (occurrence: US)
  Receive Date: 20140512
  Receipt Date: 20140515
  Transmission Date: 20141212
  Serious: Yes (Other)
  Sender: FDA-Public Use
  Company Number: CHPA2014US005874

PATIENT
  Age: 31 Year
  Sex: Female

DRUGS (2)
  1. EX-LAX MAX STR LAX PILLS SENNA [Suspect]
     Indication: BOWEL MOVEMENT IRREGULARITY
     Dosage: 1 DF, QD
     Route: 048
  2. EX-LAX MAX STR LAX PILLS SENNA [Suspect]
     Indication: OFF LABEL USE

REACTIONS (5)
  - Pelvic floor muscle weakness [Unknown]
  - Gastrointestinal motility disorder [Unknown]
  - Malaise [Not Recovered/Not Resolved]
  - Therapeutic response changed [Unknown]
  - Incorrect drug administration duration [Unknown]
